APPROVED DRUG PRODUCT: PROTONIX
Active Ingredient: PANTOPRAZOLE SODIUM
Strength: EQ 40MG BASE
Dosage Form/Route: TABLET, DELAYED RELEASE;ORAL
Application: N020987 | Product #001 | TE Code: AB
Applicant: WYETH PHARMACEUTICALS LLC
Approved: Feb 2, 2000 | RLD: Yes | RS: Yes | Type: RX